FAERS Safety Report 7731038-4 (Version None)
Quarter: 2011Q3

REPORT INFORMATION
  Report Type: 
  Country: None (occurrence: None)
  Receive Date: 20110906
  Receipt Date: 20110906
  Transmission Date: 20111222
  Serious: Yes (Other)
  Sender: FDA-Public Use
  Company Number: None

PATIENT
  Sex: Female
  Weight: 81.646 kg

DRUGS (1)
  1. COLCRYS [Suspect]
     Indication: FAMILIAL MEDITERRANEAN FEVER
     Dosage: 0.6MG
     Route: 048

REACTIONS (8)
  - PRODUCT SUBSTITUTION ISSUE [None]
  - FAMILIAL MEDITERRANEAN FEVER [None]
  - CONDITION AGGRAVATED [None]
  - OEDEMA PERIPHERAL [None]
  - DISEASE RECURRENCE [None]
  - GAIT DISTURBANCE [None]
  - FIBROMYALGIA [None]
  - DIARRHOEA [None]
